FAERS Safety Report 14533870 (Version 1)
Quarter: 2018Q1

REPORT INFORMATION
  Report Type: Spontaneous
  Country: FR (occurrence: FR)
  Receive Date: 20180215
  Receipt Date: 20180215
  Transmission Date: 20180509
  Serious: Yes (Other)
  Sender: FDA-Public Use
  Company Number: FR-MERCK KGAA-2042008

PATIENT
  Age: 58 Year
  Sex: Female
  Weight: 55 kg

DRUGS (2)
  1. NOVOTHYROX [Suspect]
     Active Substance: LEVOTHYROXINE SODIUM
     Indication: THYROIDECTOMY
     Route: 048
     Dates: start: 2017
  2. LEVOTHYROX 175 [Suspect]
     Active Substance: LEVOTHYROXINE
     Route: 048
     Dates: start: 20170801

REACTIONS (6)
  - Diffuse alopecia [Not Recovered/Not Resolved]
  - Fatigue [Not Recovered/Not Resolved]
  - Headache [Not Recovered/Not Resolved]
  - Chest pain [Not Recovered/Not Resolved]
  - Insomnia [Not Recovered/Not Resolved]
  - Blood thyroid stimulating hormone [Unknown]

NARRATIVE: CASE EVENT DATE: 201707
